FAERS Safety Report 7477908-6 (Version None)
Quarter: 2011Q2

REPORT INFORMATION
  Report Type: 
  Country: None (occurrence: None)
  Receive Date: 20110513
  Receipt Date: 20101220
  Transmission Date: 20111010
  Serious: No
  Sender: FDA-Public Use
  Company Number: US-BAYER-2010-009144

PATIENT
  Age: 65 Year
  Sex: Female
  Weight: 72.562 kg

DRUGS (1)
  1. MAGNEVIST [Suspect]
     Indication: NUCLEAR MAGNETIC RESONANCE IMAGING
     Dosage: 15 ML, ONCE
     Route: 042
     Dates: start: 20101220, end: 20101220

REACTIONS (5)
  - EYE IRRITATION [None]
  - DIZZINESS [None]
  - ERYTHEMA [None]
  - FEELING ABNORMAL [None]
  - EYE PRURITUS [None]
